FAERS Safety Report 6604212-8 (Version None)
Quarter: 2010Q1

REPORT INFORMATION
  Report Type: 
  Country: None (occurrence: None)
  Receive Date: 20100226
  Receipt Date: 20090706
  Transmission Date: 20100710
  Serious: Yes (Other)
  Sender: FDA-Public Use
  Company Number: A0795504A

PATIENT
  Age: 22 Year
  Sex: Male

DRUGS (3)
  1. LAMICTAL CD [Suspect]
     Indication: BIPOLAR DISORDER
     Dosage: 100MG TWICE PER DAY
     Route: 048
     Dates: start: 20020101
  2. QUETIAPINE [Concomitant]
  3. HALOPERIDOL [Concomitant]

REACTIONS (1)
  - HEPATIC ENZYME INCREASED [None]
